FAERS Safety Report 22783316 (Version 2)
Quarter: 2024Q1

REPORT INFORMATION
  Report Type: Spontaneous
  Country: US (occurrence: US)
  Receive Date: 20230803
  Receipt Date: 20240129
  Transmission Date: 20240410
  Serious: No
  Sender: FDA-Public Use
  Company Number: US-SAREPTA THERAPEUTICS INC.-SRP2023-003624

PATIENT
  Age: 7 Year
  Sex: Male
  Weight: 28.5 kg

DRUGS (3)
  1. AMONDYS 45 [Suspect]
     Active Substance: CASIMERSEN
     Indication: Product used for unknown indication
     Dosage: 850 MILLIGRAM, WEEKLY
     Route: 042
     Dates: start: 20230526, end: 20230711
  2. AMONDYS 45 [Suspect]
     Active Substance: CASIMERSEN
     Dosage: 850 MILLIGRAM, WEEKLY
     Route: 042
     Dates: start: 20230725
  3. EMFLAZA [Concomitant]
     Active Substance: DEFLAZACORT
     Indication: Product used for unknown indication
     Dosage: 24 MILLIGRAM, QD
     Route: 048

REACTIONS (1)
  - Poor venous access [Recovered/Resolved]

NARRATIVE: CASE EVENT DATE: 20230717
